FAERS Safety Report 18270449 (Version 1)
Quarter: 2020Q3

REPORT INFORMATION
  Report Type: Spontaneous
  Country: US (occurrence: US)
  Receive Date: 20200916
  Receipt Date: 20200916
  Transmission Date: 20201103
  Serious: No
  Sender: FDA-Public Use
  Company Number: US-AUROBINDO-AUR-APL-2020-002776

PATIENT
  Age: 65 Year
  Sex: Male
  Weight: 95.2 kg

DRUGS (6)
  1. LOSARTAN. [Concomitant]
     Active Substance: LOSARTAN
     Indication: PRODUCT USED FOR UNKNOWN INDICATION
     Dosage: UNK
     Route: 065
  2. INSULIN [Interacting]
     Active Substance: INSULIN NOS
     Indication: PRODUCT USED FOR UNKNOWN INDICATION
     Dosage: UNK
     Route: 065
  3. ALPRAZOLAM TABLETS USP 2MG [Suspect]
     Active Substance: ALPRAZOLAM
     Indication: INSOMNIA
  4. HYDROCHLOROTHIAZIDE. [Interacting]
     Active Substance: HYDROCHLOROTHIAZIDE
     Indication: PRODUCT USED FOR UNKNOWN INDICATION
     Dosage: UNK
     Route: 065
  5. ALPRAZOLAM TABLETS USP 2MG [Suspect]
     Active Substance: ALPRAZOLAM
     Indication: ANXIETY DISORDER
     Dosage: HALF TABLET BEFORE NOON, AND ANOTHER HALF IN AFTEMOON AND ONE AND HALF OR I OF 3 QUARTERS
     Route: 065
     Dates: start: 20200102
  6. AMLODIPINE [Concomitant]
     Active Substance: AMLODIPINE BESYLATE
     Indication: PRODUCT USED FOR UNKNOWN INDICATION
     Dosage: UNK
     Route: 065

REACTIONS (6)
  - Middle insomnia [Unknown]
  - Wrong technique in product usage process [Unknown]
  - Hypersensitivity [Not Recovered/Not Resolved]
  - Pruritus [Not Recovered/Not Resolved]
  - Drug ineffective [Unknown]
  - Product substitution issue [Not Recovered/Not Resolved]

NARRATIVE: CASE EVENT DATE: 20200106
